FAERS Safety Report 17700305 (Version 1)
Quarter: 2020Q2

REPORT INFORMATION
  Report Type: Spontaneous
  Country: FR (occurrence: FR)
  Receive Date: 20200423
  Receipt Date: 20200423
  Transmission Date: 20200714
  Serious: Yes (Hospitalization)
  Sender: FDA-Public Use
  Company Number: FR-MYLANLABS-2020M1038790

PATIENT
  Age: 57 Year
  Sex: Female

DRUGS (5)
  1. SERESTA [Suspect]
     Active Substance: OXAZEPAM
     Indication: PRODUCT USED FOR UNKNOWN INDICATION
     Dosage: 1000 MILLIGRAM, TOTAL
     Route: 048
     Dates: start: 20200217, end: 20200217
  2. CLOMIPRAMINE [Suspect]
     Active Substance: CLOMIPRAMINE
     Indication: PRODUCT USED FOR UNKNOWN INDICATION
     Dosage: 750 MILLIGRAM, TOTAL
     Route: 048
     Dates: start: 20200217, end: 20200217
  3. DOLOSPASMYL [Suspect]
     Active Substance: ALVERINE CITRATE\DIMETHICONE
     Indication: PRODUCT USED FOR UNKNOWN INDICATION
     Dosage: 10 DOSAGE FORM, TOTAL
     Route: 048
     Dates: start: 20200217, end: 20200217
  4. PREGABALIN. [Suspect]
     Active Substance: PREGABALIN
     Indication: PRODUCT USED FOR UNKNOWN INDICATION
     Dosage: 1400 MILLIGRAM, TOTAL
     Route: 048
     Dates: start: 20200217, end: 20200217
  5. ZOPICLONE [Suspect]
     Active Substance: ZOPICLONE
     Indication: PRODUCT USED FOR UNKNOWN INDICATION
     Dosage: 105 MILLIGRAM, TOTAL
     Route: 048
     Dates: start: 20200217, end: 20200217

REACTIONS (4)
  - Poisoning deliberate [Recovering/Resolving]
  - Intentional overdose [Unknown]
  - Coma [Recovered/Resolved]
  - Anticholinergic syndrome [Recovering/Resolving]

NARRATIVE: CASE EVENT DATE: 20200217
